FAERS Safety Report 12358425 (Version 4)
Quarter: 2017Q2

REPORT INFORMATION
  Report Type: Spontaneous
  Country: US (occurrence: US)
  Receive Date: 20160512
  Receipt Date: 20170628
  Transmission Date: 20170830
  Serious: Yes (Other)
  Sender: FDA-Public Use
  Company Number: US-PFIZER INC-2016244398

PATIENT
  Age: 77 Year
  Sex: Female
  Weight: 76.64 kg

DRUGS (35)
  1. ATARAX [Concomitant]
     Active Substance: HYDROXYZINE HYDROCHLORIDE
     Dosage: 25 MG, 1X/DAY
     Route: 048
  2. SYNTHROID [Concomitant]
     Active Substance: LEVOTHYROXINE SODIUM
     Indication: HYPOTHYROIDISM
     Dosage: 88 UG, DAILY
     Route: 048
     Dates: start: 20151222
  3. PAXIL [Concomitant]
     Active Substance: PAROXETINE HYDROCHLORIDE
     Dosage: 30 MG, 2X/DAY
     Route: 048
     Dates: start: 20160302
  4. VITAMIN C [Concomitant]
     Active Substance: ASCORBIC ACID
     Indication: URINARY TRACT INFECTION
  5. MAGNESIUM CHLORIDE. [Concomitant]
     Active Substance: MAGNESIUM CHLORIDE
     Indication: HYPOMAGNESAEMIA
     Dosage: 64 MG, 2X/DAY
     Route: 048
  6. TENORMIN [Concomitant]
     Active Substance: ATENOLOL
     Dosage: 25 MG, 2X/DAY
     Route: 048
  7. CUTIVATE [Concomitant]
     Active Substance: FLUTICASONE PROPIONATE
     Dosage: UNK
     Dates: start: 20141022
  8. LANTUS SOLOSTAR [Concomitant]
     Active Substance: INSULIN GLARGINE
     Dosage: 40 IU, 2X/DAY
     Route: 058
     Dates: start: 20150514
  9. VITAMIN C [Concomitant]
     Active Substance: ASCORBIC ACID
     Indication: HOMOCYSTINURIA
     Dosage: 500 MG, 1X/DAY
     Route: 048
  10. ASPIRIN 81 [Concomitant]
     Active Substance: ASPIRIN
     Dosage: 81 MG, 1X/DAY
     Route: 048
  11. LANTUS PEN [Concomitant]
     Dosage: 10 IU, 1X/DAY
  12. BENADRYL [Concomitant]
     Active Substance: DIPHENHYDRAMINE HYDROCHLORIDE
     Dosage: 25 MG, AS NEEDED
     Route: 048
  13. SYNTHROID [Concomitant]
     Active Substance: LEVOTHYROXINE SODIUM
     Dosage: 88 UG, 1X/DAY
     Route: 048
  14. MAG DELAY [Concomitant]
     Dosage: 64 MG, 2X/DAY
     Route: 048
     Dates: start: 20160114
  15. VICTOZA 3-PAK [Concomitant]
     Indication: TYPE 2 DIABETES MELLITUS
     Dosage: UNK UNK, 1X/DAY (0.2 MLS (1.2 MG TOTAL) INTO THE SKIN)
  16. LYRICA [Suspect]
     Active Substance: PREGABALIN
     Dosage: 75 MG, 3X/DAY
     Route: 048
     Dates: start: 20160317
  17. NORVASC [Concomitant]
     Active Substance: AMLODIPINE BESYLATE
     Dosage: 10 MG, DAILY
     Route: 048
     Dates: start: 20151222
  18. SPECTAZOLE [Concomitant]
     Active Substance: ECONAZOLE NITRATE
     Dosage: UNK, AS NEEDED (1% CREAM)
  19. ATARAX [Concomitant]
     Active Substance: HYDROXYZINE HYDROCHLORIDE
     Indication: ANXIETY
     Dosage: 25 MG, 1X/DAY
     Route: 048
     Dates: start: 20160328
  20. NOVOLOG PEN [Concomitant]
     Indication: TYPE 2 DIABETES MELLITUS
     Dosage: 17 IU, 3X/DAY (WITH MEALS)
     Route: 058
  21. ZOLOFT [Concomitant]
     Active Substance: SERTRALINE HYDROCHLORIDE
     Dosage: 50 MG, DAILY
     Route: 048
  22. LASIX [Concomitant]
     Active Substance: FUROSEMIDE
     Dosage: 20 MG, 1X/DAY
     Route: 048
     Dates: start: 20150730
  23. MYCOSTATIN [Concomitant]
     Active Substance: NYSTATIN
     Dosage: UNK, 3X/DAY
     Route: 061
     Dates: start: 20150926
  24. PROTONIX [Concomitant]
     Active Substance: PANTOPRAZOLE SODIUM
     Dosage: 40 MG, 1X/DAY
     Route: 048
  25. PRINIVIL [Concomitant]
     Active Substance: LISINOPRIL
     Indication: DIABETIC NEUROPATHY
     Dosage: 2.5 MG, 1X/DAY
     Route: 048
  26. LIORESAL [Concomitant]
     Active Substance: BACLOFEN
     Dosage: 25 MG, 1X/DAY
     Route: 048
  27. SPECTAZOLE [Concomitant]
     Active Substance: ECONAZOLE NITRATE
     Indication: BODY TINEA
     Dosage: UNK, AS NEEDED (1% CREAM)
     Dates: start: 20151218
  28. PROTONIX [Concomitant]
     Active Substance: PANTOPRAZOLE SODIUM
     Indication: GASTROOESOPHAGEAL REFLUX DISEASE
     Dosage: 40 MG, 1X/DAY
     Route: 048
     Dates: start: 20160322
  29. TENORMIN [Concomitant]
     Active Substance: ATENOLOL
     Indication: HYPERTENSION
     Dosage: 25 MG, 2X/DAY
     Route: 048
     Dates: start: 20160406
  30. FLORASTOR [Concomitant]
     Active Substance: SACCHAROMYCES CEREVISIAE
     Dosage: 250 MG, 2X/DAY
     Route: 048
  31. LIORESAL [Concomitant]
     Active Substance: BACLOFEN
     Indication: MYALGIA
     Dosage: 10 MG, 1X/DAY, (AT BEDTIME)
     Route: 048
     Dates: start: 20160322
  32. LASIX [Concomitant]
     Active Substance: FUROSEMIDE
     Dosage: 20 MG, 1X/DAY
     Route: 048
  33. GLUCOPHAGE [Concomitant]
     Active Substance: METFORMIN HYDROCHLORIDE
     Dosage: 500 MG, 2X/DAY, WITH MEALS
     Route: 048
     Dates: start: 20160322
  34. KENALOG [Concomitant]
     Active Substance: TRIAMCINOLONE ACETONIDE
     Dosage: UNK
     Dates: start: 20140312
  35. ZESTRIL [Concomitant]
     Active Substance: LISINOPRIL
     Indication: DIABETIC NEUROPATHY
     Dosage: 2.5 MG, 1X/DAY

REACTIONS (1)
  - Blindness [Unknown]
